FAERS Safety Report 16538617 (Version 1)
Quarter: 2019Q3

REPORT INFORMATION
  Report Type: Spontaneous
  Country: US (occurrence: US)
  Receive Date: 20190708
  Receipt Date: 20190708
  Transmission Date: 20191004
  Serious: Yes (Other)
  Sender: FDA-Public Use
  Company Number: US-SA-2019SA180606

PATIENT
  Age: 68 Year
  Sex: Female
  Weight: 104.3 kg

DRUGS (1)
  1. AUBAGIO [Suspect]
     Active Substance: TERIFLUNOMIDE
     Indication: MULTIPLE SCLEROSIS
     Dosage: 1 DF (TABLET), QD
     Route: 048
     Dates: start: 201804

REACTIONS (1)
  - Cataract [Unknown]
